FAERS Safety Report 7734917-7 (Version None)
Quarter: 2011Q3

REPORT INFORMATION
  Report Type: 
  Country: None (occurrence: None)
  Receive Date: 20110907
  Receipt Date: 20110803
  Transmission Date: 20111222
  Serious: No
  Sender: FDA-Public Use
  Company Number: US-TYCO HEALTHCARE/MALLINCKRODT-T201101540

PATIENT
  Age: 63 Year
  Sex: Female
  Weight: 117.91 kg

DRUGS (1)
  1. EXALGO [Suspect]
     Indication: PAIN
     Dosage: UNK
     Dates: start: 20110701, end: 20110803

REACTIONS (2)
  - CONSTIPATION [None]
  - DRUG SCREEN NEGATIVE [None]
